FAERS Safety Report 25764259 (Version 1)
Quarter: 2025Q3

REPORT INFORMATION
  Report Type: Spontaneous
  Country: US (occurrence: US)
  Receive Date: 20250905
  Receipt Date: 20250905
  Transmission Date: 20251021
  Serious: No
  Sender: DOMPE FARMACEUTICI
  Company Number: US-FARMAPROD-202412-4306

PATIENT
  Sex: Male

DRUGS (5)
  1. OXERVATE [Suspect]
     Active Substance: CENEGERMIN-BKBJ
     Indication: Neurotrophic keratopathy
     Route: 047
     Dates: start: 20241212
  2. OXERVATE [Suspect]
     Active Substance: CENEGERMIN-BKBJ
  3. BRIMONIDINE TARTRATE\TIMOLOL MALEATE [Concomitant]
     Active Substance: BRIMONIDINE TARTRATE\TIMOLOL MALEATE
  4. LATANOPROST [Concomitant]
     Active Substance: LATANOPROST
  5. XIIDRA [Concomitant]
     Active Substance: LIFITEGRAST

REACTIONS (3)
  - Eye pain [Unknown]
  - Vision blurred [Not Recovered/Not Resolved]
  - Visual impairment [Not Recovered/Not Resolved]
